FAERS Safety Report 16972322 (Version 2)
Quarter: 2020Q3

REPORT INFORMATION
  Report Type: Report from Study
  Country: BR (occurrence: BR)
  Receive Date: 20191029
  Receipt Date: 20200811
  Transmission Date: 20201102
  Serious: Yes (Hospitalization)
  Sender: FDA-Public Use
  Company Number: BR-TAKEDA-2018TUS022782

PATIENT
  Sex: Female

DRUGS (2)
  1. CICLO [Concomitant]
     Indication: CONTRACEPTION
     Dosage: UNK
  2. VEDOLIZUMAB [Suspect]
     Active Substance: VEDOLIZUMAB
     Indication: CROHN^S DISEASE
     Dosage: 300 MILLIGRAM
     Route: 042
     Dates: start: 20180626

REACTIONS (7)
  - Gastrointestinal pain [Unknown]
  - Constipation [Unknown]
  - Oropharyngeal pain [Unknown]
  - Pregnancy [Recovered/Resolved]
  - Uterine contractions during pregnancy [Unknown]
  - Dry mouth [Unknown]
  - Hypersensitivity [Unknown]

NARRATIVE: CASE EVENT DATE: 2018
